FAERS Safety Report 5330319-1 (Version None)
Quarter: 2007Q2

REPORT INFORMATION
  Report Type: 
  Country: None (occurrence: None)
  Receive Date: 20070521
  Receipt Date: 20070510
  Transmission Date: 20071010
  Serious: Yes (Hospitalization)
  Sender: FDA-Public Use
  Company Number: HQWYE364112MAR07

PATIENT
  Sex: Female
  Weight: 77.18 kg

DRUGS (12)
  1. EFFEXOR XR [Suspect]
     Indication: MENOPAUSAL SYMPTOMS
     Route: 048
     Dates: start: 20061101, end: 20061201
  2. EFFEXOR XR [Suspect]
     Route: 048
     Dates: start: 20061201, end: 20070118
  3. EFFEXOR XR [Suspect]
     Route: 048
     Dates: start: 20070119, end: 20070101
  4. EFFEXOR XR [Suspect]
     Dates: start: 20070101, end: 20070307
  5. EFFEXOR XR [Suspect]
     Route: 048
     Dates: start: 20070308, end: 20070101
  6. EFFEXOR XR [Suspect]
     Route: 048
     Dates: start: 20070101, end: 20070101
  7. EFFEXOR XR [Suspect]
     Dates: start: 20070101, end: 20070101
  8. EFFEXOR XR [Suspect]
     Route: 048
     Dates: start: 20070101, end: 20070101
  9. DIOVAN [Concomitant]
     Indication: HYPERTENSION
     Dosage: 80 MG IN THE MORNING
  10. CALCIUM CHLORIDE [Concomitant]
     Dosage: DOSE AND FREQUENCY UNSPECIFIED
  11. TYLENOL [Concomitant]
     Indication: ARTHRITIS
     Dosage: 1000 MG IN AM AND PM
  12. SIMVASTATIN [Concomitant]
     Dosage: 20 MG FREQUENCY UNSPECIFIED

REACTIONS (12)
  - ABNORMAL DREAMS [None]
  - CONSTIPATION [None]
  - DIZZINESS [None]
  - DRUG INEFFECTIVE [None]
  - DRY MOUTH [None]
  - DYSSTASIA [None]
  - FALL [None]
  - HEADACHE [None]
  - HYPERHIDROSIS [None]
  - LOSS OF CONSCIOUSNESS [None]
  - SOMNOLENCE [None]
  - TREMOR [None]
